FAERS Safety Report 9373252 (Version 3)
Quarter: 2014Q2

REPORT INFORMATION
  Report Type: Spontaneous
  Country: US (occurrence: US)
  Receive Date: 20130627
  Receipt Date: 20140516
  Transmission Date: 20141212
  Serious: Yes (Other)
  Sender: FDA-Public Use
  Company Number: US-ELI_LILLY_AND_COMPANY-US201306005868

PATIENT
  Sex: Male

DRUGS (3)
  1. CYMBALTA [Suspect]
     Indication: DEPRESSION
     Dosage: UNK, UNKNOWN
     Route: 065
     Dates: start: 2004, end: 201212
  2. CYMBALTA [Suspect]
     Indication: FIBROMYALGIA
  3. CHANTIX [Concomitant]
     Indication: PRODUCT USED FOR UNKNOWN INDICATION
     Dosage: UNK
     Dates: start: 20061130

REACTIONS (28)
  - Suicidal ideation [Unknown]
  - Suicidal ideation [Unknown]
  - Amnesia [Unknown]
  - Memory impairment [Not Recovered/Not Resolved]
  - Agoraphobia [Unknown]
  - Apathy [Unknown]
  - Emotional distress [Unknown]
  - Depression [Unknown]
  - Stress [Unknown]
  - Rash [Unknown]
  - Arthralgia [Unknown]
  - Pulmonary calcification [Unknown]
  - Eye pain [Unknown]
  - Stress [Unknown]
  - Arthralgia [Unknown]
  - Tinnitus [Unknown]
  - Insomnia [Unknown]
  - Pain in extremity [Unknown]
  - Pain in extremity [Unknown]
  - Nausea [Unknown]
  - Back pain [Unknown]
  - Anxiety [Unknown]
  - Dizziness [Unknown]
  - Drug withdrawal syndrome [Not Recovered/Not Resolved]
  - Anxiety [Unknown]
  - Paraesthesia [Not Recovered/Not Resolved]
  - Diarrhoea [Unknown]
  - Fatigue [Unknown]
